FAERS Safety Report 20537240 (Version 1)
Quarter: 2022Q1

REPORT INFORMATION
  Report Type: Spontaneous
  Country: US (occurrence: None)
  Receive Date: 20220301
  Receipt Date: 20220301
  Transmission Date: 20220424
  Serious: Yes (Hospitalization)
  Sender: FDA-Public Use
  Company Number: None

PATIENT
  Age: 54 Year
  Sex: Female
  Weight: 82.8 kg

DRUGS (6)
  1. OZEMPIC [Suspect]
     Active Substance: SEMAGLUTIDE
     Indication: Diabetes mellitus
     Dates: start: 20211226, end: 20220220
  2. METFORMIN HYDROCHLORIDE [Concomitant]
     Active Substance: METFORMIN HYDROCHLORIDE
  3. OLMESARTAN [Concomitant]
     Active Substance: OLMESARTAN
  4. ROSUVASTATIN [Concomitant]
     Active Substance: ROSUVASTATIN
  5. L-methylfolate-algae [Concomitant]
  6. FETZIMA [Concomitant]
     Active Substance: LEVOMILNACIPRAN HYDROCHLORIDE

REACTIONS (5)
  - Nausea [None]
  - Vomiting [None]
  - Gastrooesophageal reflux disease [None]
  - Dehydration [None]
  - Renal disorder [None]

NARRATIVE: CASE EVENT DATE: 20220225
